FAERS Safety Report 9912560 (Version 1)
Quarter: 2014Q1

REPORT INFORMATION
  Report Type: Spontaneous
  Country: KR (occurrence: None)
  Receive Date: 20140212
  Receipt Date: 20140212
  Transmission Date: 20141002
  Serious: Yes (Hospitalization, Other)
  Sender: FDA-Public Use
  Company Number: NSR_01517_2014

PATIENT
  Age: 35 Year
  Sex: Female

DRUGS (2)
  1. BACLOFEN [Suspect]
     Indication: RIB FRACTURE
  2. BACLOFEN [Suspect]
     Indication: HICCUPS

REACTIONS (6)
  - Mental impairment [None]
  - Platelet count increased [None]
  - Blood potassium decreased [None]
  - Blood chloride decreased [None]
  - Blood magnesium increased [None]
  - Toxic encephalopathy [None]
